FAERS Safety Report 10962852 (Version 4)
Quarter: 2020Q2

REPORT INFORMATION
  Report Type: Spontaneous
  Country: PT (occurrence: PT)
  Receive Date: 20150327
  Receipt Date: 20200623
  Transmission Date: 20200713
  Serious: Yes (Disabling, Other)
  Sender: FDA-Public Use
  Company Number: PT-BRISTOL-MYERS SQUIBB COMPANY-BMS-2015-015782

PATIENT
  Age: 37 Year
  Sex: Female

DRUGS (3)
  1. TENOFOVIR [Concomitant]
     Active Substance: TENOFOVIR
     Indication: HIV INFECTION
     Route: 065
  2. EMTRICITABINE/TENOFOVIR DISOPROXIL FUMARATE [Concomitant]
     Active Substance: EMTRICITABINE\TENOFOVIR DISOPROXIL FUMARATE
     Indication: PRODUCT USED FOR UNKNOWN INDICATION
     Dosage: UNK
     Route: 065
  3. STOCRIN [Suspect]
     Active Substance: EFAVIRENZ
     Indication: HIV INFECTION
     Route: 065

REACTIONS (11)
  - Visual acuity reduced [Unknown]
  - Dizziness [Unknown]
  - Maculopathy [Unknown]
  - Insomnia [Unknown]
  - Fatigue [Unknown]
  - Blindness [Not Recovered/Not Resolved]
  - Vision blurred [Unknown]
  - Fluorescence angiogram abnormal [Unknown]
  - Ocular toxicity [Not Recovered/Not Resolved]
  - Retinal depigmentation [Unknown]
  - Optical coherence tomography abnormal [Unknown]

NARRATIVE: CASE EVENT DATE: 2010
